FAERS Safety Report 10410231 (Version 1)
Quarter: 2014Q3

REPORT INFORMATION
  Report Type: Report from Study
  Country: ZA (occurrence: ZA)
  Receive Date: 20140826
  Receipt Date: 20140826
  Transmission Date: 20150326
  Serious: Yes (Hospitalization, Other)
  Sender: FDA-Public Use
  Company Number: ZA-BAYER-2014-063816

PATIENT
  Sex: Female

DRUGS (1)
  1. BETAFERON [Suspect]
     Active Substance: INTERFERON BETA-1B

REACTIONS (25)
  - Fall [None]
  - Neuralgia [None]
  - Myalgia [None]
  - Gastrointestinal disorder [None]
  - Balance disorder [None]
  - Visual impairment [None]
  - Dental care [None]
  - Cardiac flutter [None]
  - Anxiety [None]
  - Bladder disorder [None]
  - Skeletal injury [Not Recovered/Not Resolved]
  - Eye operation [None]
  - Rash [None]
  - Injection site scab [None]
  - Urinary tract infection [None]
  - Weight decreased [None]
  - Unevaluable event [None]
  - Sensory disturbance [None]
  - Heart rate irregular [None]
  - Multiple sclerosis relapse [None]
  - Pain in extremity [None]
  - Musculoskeletal chest pain [Not Recovered/Not Resolved]
  - Injection site reaction [None]
  - Bladder disorder [None]
  - Vision blurred [None]

NARRATIVE: CASE EVENT DATE: 20071202
